FAERS Safety Report 6912858-2 (Version None)
Quarter: 2010Q3

REPORT INFORMATION
  Report Type: 
  Country: None (occurrence: None)
  Receive Date: 20100806
  Receipt Date: 20090214
  Transmission Date: 20110219
  Serious: No
  Sender: FDA-Public Use
  Company Number: US-PFIZER INC-2009159948

PATIENT
  Sex: Female

DRUGS (3)
  1. DILANTIN-125 [Suspect]
     Dosage: UNK
     Route: 048
  2. PREVACID [Concomitant]
     Dosage: UNK
  3. DUONEB [Concomitant]
     Dosage: UNK

REACTIONS (2)
  - DYSPHAGIA [None]
  - MALAISE [None]
